FAERS Safety Report 4457991-2 (Version None)
Quarter: 2004Q3

REPORT INFORMATION
  Report Type: 
  Country: None (occurrence: None)
  Receive Date: 20040917
  Receipt Date: 20040416
  Transmission Date: 20050211
  Serious: Yes (Other)
  Sender: FDA-Public Use
  Company Number: US-JNJFOC-20040403956

PATIENT
  Age: 44 Year
  Sex: Male
  Weight: 113.3993 kg

DRUGS (3)
  1. TOPAMAX [Suspect]
     Indication: WEIGHT DECREASED
     Dosage: 100 MG, 3 IN 1 DAY
     Dates: end: 20040201
  2. BLOOD PRESSURE MEDICATION ( ) ANTIHYPERTENSIVES [Concomitant]
  3. ALLEGRA [Concomitant]

REACTIONS (8)
  - AGEUSIA [None]
  - ANOREXIA [None]
  - DRY MOUTH [None]
  - HYPERGLYCAEMIA [None]
  - ORAL MUCOSAL DISORDER [None]
  - THIRST [None]
  - WEIGHT DECREASED [None]
  - WEIGHT INCREASED [None]
